FAERS Safety Report 21635031 (Version 2)
Quarter: 2023Q1

REPORT INFORMATION
  Report Type: Spontaneous
  Country: US (occurrence: US)
  Receive Date: 20221123
  Receipt Date: 20230112
  Transmission Date: 20230418
  Serious: No
  Sender: FDA-Public Use
  Company Number: US-PFIZER INC-202201318734

PATIENT
  Age: 65 Year
  Sex: Female
  Weight: 52.608 kg

DRUGS (2)
  1. PAXLOVID [Suspect]
     Active Substance: NIRMATRELVIR\RITONAVIR
     Indication: COVID-19 treatment
     Dosage: 3 DF, 1X/DAY
     Route: 048
     Dates: start: 20221110, end: 20221114
  2. LOSARTAN [Concomitant]
     Active Substance: LOSARTAN
     Indication: Blood pressure abnormal
     Dosage: 50 MG, 1X/DAY
     Route: 048
     Dates: start: 20180905, end: 20221121

REACTIONS (4)
  - Therapeutic product effect incomplete [Unknown]
  - Dizziness [Recovered/Resolved]
  - Tongue disorder [Recovered/Resolved]
  - Taste disorder [Recovered/Resolved]

NARRATIVE: CASE EVENT DATE: 20220101
